FAERS Safety Report 9412630 (Version 2)
Quarter: 2013Q3

REPORT INFORMATION
  Report Type: Spontaneous
  Country: US (occurrence: US)
  Receive Date: 20130722
  Receipt Date: 20130808
  Transmission Date: 20140515
  Serious: Yes (Other)
  Sender: FDA-Public Use
  Company Number: US-PFIZER INC-2013209436

PATIENT
  Age: 57 Year
  Sex: Male
  Weight: 87.98 kg

DRUGS (3)
  1. PRISTIQ [Suspect]
     Indication: DEPRESSION
     Dosage: 50 MG, 1X/DAY
     Route: 048
     Dates: start: 20090824
  2. MELOXICAM [Concomitant]
     Indication: ARTHRITIS
     Dosage: 15 DAILY
  3. ADDERALL [Concomitant]
     Dosage: 10 MG, 2X/DAY

REACTIONS (3)
  - Arthralgia [Not Recovered/Not Resolved]
  - Impaired work ability [Unknown]
  - Activities of daily living impaired [Unknown]
